FAERS Safety Report 4996912-0 (Version None)
Quarter: 2006Q2

REPORT INFORMATION
  Report Type: 
  Country: None (occurrence: None)
  Receive Date: 20060509
  Receipt Date: 20060418
  Transmission Date: 20061013
  Serious: Yes (Other)
  Sender: FDA-Public Use
  Company Number: AU-GLAXOSMITHKLINE-B0421323A

PATIENT
  Age: 61 Year
  Sex: Female
  Weight: 55 kg

DRUGS (2)
  1. FLIXOTIDE [Suspect]
     Indication: ASTHMA
     Dosage: 250MCG TWICE PER DAY
     Route: 055
  2. SEREVENT [Concomitant]
     Indication: ASTHMA
     Dosage: 50MCG TWICE PER DAY
     Route: 055

REACTIONS (8)
  - ANOREXIA [None]
  - BLOOD CORTISOL DECREASED [None]
  - BLOOD GROWTH HORMONE DECREASED [None]
  - DIZZINESS [None]
  - FATIGUE [None]
  - HYPOGLYCAEMIA [None]
  - HYPOTHALAMO-PITUITARY DISORDERS [None]
  - WEIGHT DECREASED [None]
